FAERS Safety Report 23213082 (Version 1)
Quarter: 2023Q4

REPORT INFORMATION
  Report Type: Spontaneous
  Country: None (occurrence: PL)
  Receive Date: 20231121
  Receipt Date: 20231121
  Transmission Date: 20240109
  Serious: Yes (Other)
  Sender: FDA-Public Use
  Company Number: PL-B.Braun Medical Inc.-2148536

PATIENT
  Age: 41 Year
  Weight: 88 kg

DRUGS (1)
  1. METRONIDAZOLE [Suspect]
     Active Substance: METRONIDAZOLE

REACTIONS (6)
  - Anxiety [None]
  - Dizziness [None]
  - Dyspnoea [None]
  - Tremor [None]
  - Hyperhidrosis [None]
  - Pain [None]
